FAERS Safety Report 10415272 (Version 1)
Quarter: 2014Q3

REPORT INFORMATION
  Report Type: Spontaneous
  Country: GB (occurrence: GB)
  Receive Date: 20140828
  Receipt Date: 20140828
  Transmission Date: 20150326
  Serious: Yes (Death, Hospitalization)
  Sender: FDA-Public Use
  Company Number: GB-PFIZER INC-2014237197

PATIENT
  Age: 78 Year
  Sex: Male

DRUGS (2)
  1. MEDRONE [Suspect]
     Active Substance: METHYLPREDNISOLONE
     Indication: PERIPHERAL SWELLING
  2. MEDRONE [Suspect]
     Active Substance: METHYLPREDNISOLONE
     Indication: JOINT SWELLING
     Dosage: 80 MG, DAILY

REACTIONS (1)
  - Kaposi^s sarcoma [Fatal]
